FAERS Safety Report 10036376 (Version 1)
Quarter: 2014Q1

REPORT INFORMATION
  Report Type: Spontaneous
  Country: DE (occurrence: DE)
  Receive Date: 20140325
  Receipt Date: 20140325
  Transmission Date: 20141002
  Serious: Yes (Disabling, Other)
  Sender: FDA-Public Use
  Company Number: GXKR2014DE001309

PATIENT
  Sex: Female

DRUGS (3)
  1. DOXEPIN 1A PHARMA [Suspect]
     Dosage: 100 MG, ONCE/SINGLE
     Route: 048
     Dates: start: 20140307
  2. DOXY 1A PHARMA [Suspect]
     Indication: BRONCHITIS
     Dosage: 100 MG, NO TREATMENT
     Route: 048
  3. PARACODIN DROPS [Concomitant]
     Dosage: UNK
     Dates: start: 20140307

REACTIONS (15)
  - Anaphylactic shock [Recovered/Resolved]
  - Cyanosis [Recovered/Resolved]
  - Peripheral coldness [Recovered/Resolved]
  - Asthenia [Recovered/Resolved]
  - Gait disturbance [Recovered/Resolved]
  - Amnesia [Recovered/Resolved]
  - Impaired work ability [Recovered/Resolved]
  - Sensory disturbance [Recovered/Resolved]
  - Dysarthria [Recovered/Resolved]
  - Fatigue [Unknown]
  - Motor dysfunction [Recovered/Resolved]
  - Coordination abnormal [Recovered/Resolved]
  - Illusion [Recovered/Resolved]
  - Drug dispensing error [Unknown]
  - Wrong drug administered [Unknown]
